FAERS Safety Report 8484957-8 (Version None)
Quarter: 2012Q3

REPORT INFORMATION
  Report Type: 
  Country: None (occurrence: None)
  Receive Date: 20120703
  Receipt Date: 20120627
  Transmission Date: 20120928
  Serious: Yes (Other)
  Sender: FDA-Public Use
  Company Number: VE-PFIZER INC-2012149571

PATIENT
  Age: 96 Year
  Sex: Female

DRUGS (1)
  1. CADUET [Suspect]
     Dosage: 10/20MG
     Dates: end: 20120601

REACTIONS (1)
  - ANGINA PECTORIS [None]
